FAERS Safety Report 19921032 (Version 1)
Quarter: 2021Q4

REPORT INFORMATION
  Report Type: Report from Study
  Country: US (occurrence: US)
  Receive Date: 20211005
  Receipt Date: 20211005
  Transmission Date: 20220303
  Serious: Yes (Death, Life-Threatening, Hospitalization, Other)
  Sender: FDA-Public Use
  Company Number: US-SHIRE-US201929758

PATIENT
  Age: 65 Year
  Sex: Female
  Weight: 59.86 kg

DRUGS (13)
  1. TEDUGLUTIDE [Suspect]
     Active Substance: TEDUGLUTIDE
     Indication: Short-bowel syndrome
     Dosage: STUDY DRUG NOT ADMINISTERD
     Route: 065
  2. TEDUGLUTIDE [Suspect]
     Active Substance: TEDUGLUTIDE
     Indication: Short-bowel syndrome
     Dosage: STUDY DRUG NOT ADMINISTERD
     Route: 065
  3. TEDUGLUTIDE [Suspect]
     Active Substance: TEDUGLUTIDE
     Indication: Short-bowel syndrome
     Dosage: STUDY DRUG NOT ADMINISTERD
     Route: 065
  4. TEDUGLUTIDE [Suspect]
     Active Substance: TEDUGLUTIDE
     Indication: Short-bowel syndrome
     Dosage: STUDY DRUG NOT ADMINISTERD
     Route: 065
  5. SELENIUM [Concomitant]
     Active Substance: SELENIUM
     Indication: Mineral deficiency
  6. CARAFATE [Concomitant]
     Active Substance: SUCRALFATE
     Indication: Malabsorption
  7. CARAFATE [Concomitant]
     Active Substance: SUCRALFATE
     Indication: Short-bowel syndrome
  8. OMEPRAZOLE [Concomitant]
     Active Substance: OMEPRAZOLE
     Indication: Nausea
  9. OMEPRAZOLE [Concomitant]
     Active Substance: OMEPRAZOLE
     Indication: Vomiting
  10. CREON [Concomitant]
     Active Substance: PANCRELIPASE AMYLASE\PANCRELIPASE LIPASE\PANCRELIPASE PROTEASE
     Indication: Short-bowel syndrome
  11. FENTANYL TRANSDERMAL SYSTEM [Concomitant]
     Active Substance: FENTANYL
     Indication: Adenocarcinoma
     Dosage: 50 MICROGRAM, QD
     Route: 062
     Dates: start: 20181215, end: 20181215
  12. KLONOPIN [Concomitant]
     Active Substance: CLONAZEPAM
     Indication: Anxiety
     Dosage: 0.50 MILLIGRAM, BID
     Route: 048
     Dates: start: 20181219
  13. REMERON [Concomitant]
     Active Substance: MIRTAZAPINE
     Indication: Depression
     Dosage: 15 MILLIGRAM, QHS- AT BEDTIME
     Route: 048
     Dates: start: 20181220

REACTIONS (3)
  - Deep vein thrombosis [Fatal]
  - Pleural effusion [Recovered/Resolved]
  - Metastatic neoplasm [Unknown]

NARRATIVE: CASE EVENT DATE: 20190904
